FAERS Safety Report 24064981 (Version 3)
Quarter: 2024Q3

REPORT INFORMATION
  Report Type: Spontaneous
  Country: US (occurrence: US)
  Receive Date: 20240709
  Receipt Date: 20240830
  Transmission Date: 20241016
  Serious: Yes (Other)
  Sender: BRISTOL MYERS SQUIBB
  Company Number: US-BRISTOL-MYERS SQUIBB COMPANY-2024-106280

PATIENT
  Age: 54 Year
  Sex: Female

DRUGS (1)
  1. SOTYKTU [Suspect]
     Active Substance: DEUCRAVACITINIB
     Indication: Psoriasis
     Route: 048
     Dates: start: 20230901

REACTIONS (10)
  - Immunodeficiency [Not Recovered/Not Resolved]
  - Somnolence [Unknown]
  - Illness [Not Recovered/Not Resolved]
  - Viral infection [Recovering/Resolving]
  - Sinusitis [Recovering/Resolving]
  - Lymphadenopathy [Recovering/Resolving]
  - Ear discomfort [Recovering/Resolving]
  - Asthenia [Unknown]
  - Fatigue [Unknown]
  - Diarrhoea [Unknown]

NARRATIVE: CASE EVENT DATE: 20240501
